FAERS Safety Report 12201850 (Version 3)
Quarter: 2016Q2

REPORT INFORMATION
  Report Type: Spontaneous
  Country: CH (occurrence: CH)
  Receive Date: 20160322
  Receipt Date: 20160506
  Transmission Date: 20160815
  Serious: Yes (Hospitalization)
  Sender: FDA-Public Use
  Company Number: CH-UCBSA-2016009488

PATIENT
  Age: 81 Year
  Sex: Male

DRUGS (14)
  1. AUGMENTIN [Suspect]
     Active Substance: AMOXICILLIN\CLAVULANATE POTASSIUM
     Indication: LEUKOCYTURIA
     Dosage: 1 G, 2X/DAY (BID)
     Dates: start: 20151230, end: 20160106
  2. STILNOX [Suspect]
     Active Substance: ZOLPIDEM TARTRATE
     Indication: PRODUCT USED FOR UNKNOWN INDICATION
     Dosage: 10 MG, ONCE DAILY (QD)
     Dates: start: 201512, end: 20160203
  3. RANIMED [Suspect]
     Active Substance: RANITIDINE HYDROCHLORIDE
     Indication: PRODUCT USED FOR UNKNOWN INDICATION
     Dosage: 150 MG, ONCE DAILY (QD)
     Dates: start: 201601, end: 20160206
  4. NOPIL [Suspect]
     Active Substance: SULFAMETHOXAZOLE\TRIMETHOPRIM
     Indication: LEUKOCYTURIA
     Dosage: 800/160 MG , 3X/WEEK
     Route: 048
     Dates: start: 20151230, end: 20160205
  5. PANTOZOL [Suspect]
     Active Substance: PANTOPRAZOLE SODIUM
     Indication: PRODUCT USED FOR UNKNOWN INDICATION
     Dosage: 20-40 MG, ONCE DAILY (QD)
     Dates: start: 20151221, end: 20160203
  6. COLECALCIFEROL [Concomitant]
     Active Substance: CHOLECALCIFEROL
     Indication: PRODUCT USED FOR UNKNOWN INDICATION
     Dosage: 4 GTT, ONCE DAILY (QD)
     Dates: start: 201601, end: 20160205
  7. XYZAL [Suspect]
     Active Substance: LEVOCETIRIZINE DIHYDROCHLORIDE
     Indication: PRODUCT USED FOR UNKNOWN INDICATION
     Dosage: 5 MG, ONCE DAILY (QD)
     Dates: start: 20151221, end: 20160203
  8. TRIATEC [Suspect]
     Active Substance: RAMIPRIL
     Indication: PRODUCT USED FOR UNKNOWN INDICATION
     Dosage: 5 MG, 2X/DAY (BID)
     Dates: start: 20151224, end: 20160210
  9. ALDACTONE [Suspect]
     Active Substance: SPIRONOLACTONE
     Indication: PRODUCT USED FOR UNKNOWN INDICATION
     Dates: start: 201601, end: 20160203
  10. PREDNISON [Concomitant]
     Active Substance: PREDNISONE
     Indication: PRODUCT USED FOR UNKNOWN INDICATION
     Dosage: 35 MG, ONCE DAILY (QD)
     Dates: start: 20151201
  11. CALCIMAGON D3 [Concomitant]
     Active Substance: CALCIUM\CHOLECALCIFEROL
     Indication: PRODUCT USED FOR UNKNOWN INDICATION
     Dosage: 500 MG, ONCE DAILY (QD)
     Dates: start: 20151223, end: 20160205
  12. LORAZEPAM. [Suspect]
     Active Substance: LORAZEPAM
     Indication: PRODUCT USED FOR UNKNOWN INDICATION
     Dates: start: 201601, end: 20160203
  13. AMLODIPIN [Suspect]
     Active Substance: AMLODIPINE BESYLATE
     Indication: PRODUCT USED FOR UNKNOWN INDICATION
     Dosage: 5 MG, ONCE DAILY (QD)
     Dates: start: 201601, end: 20160210
  14. PREDNISON [Concomitant]
     Active Substance: PREDNISONE
     Dosage: 25 MG
     Dates: start: 20160217

REACTIONS (2)
  - Drug-induced liver injury [Recovered/Resolved]
  - Henoch-Schonlein purpura nephritis [Not Recovered/Not Resolved]

NARRATIVE: CASE EVENT DATE: 20151223
